FAERS Safety Report 6701112-X (Version None)
Quarter: 2010Q2

REPORT INFORMATION
  Report Type: 
  Country: None (occurrence: None)
  Receive Date: 20100428
  Receipt Date: 20100428
  Transmission Date: 20101027
  Serious: Yes (Other)
  Sender: FDA-Public Use
  Company Number: None

PATIENT
  Age: 47 Year
  Sex: Female
  Weight: 81.1939 kg

DRUGS (2)
  1. TOPIRAMATE [Suspect]
     Indication: MIGRAINE PROPHYLAXIS
     Dosage: 50 MG AND 75 MG HS PO
     Route: 048
     Dates: start: 20100130, end: 20100308
  2. TOPIRAMATE [Suspect]
     Indication: MIGRAINE PROPHYLAXIS
     Dosage: 100 MG HS PO
     Route: 048
     Dates: start: 20100309, end: 20100418

REACTIONS (7)
  - DYSGEUSIA [None]
  - FATIGUE [None]
  - MEMORY IMPAIRMENT [None]
  - MIGRAINE [None]
  - SUDDEN ONSET OF SLEEP [None]
  - VISION BLURRED [None]
  - VISUAL FIELD DEFECT [None]
